FAERS Safety Report 14570838 (Version 1)
Quarter: 2018Q1

REPORT INFORMATION
  Report Type: Spontaneous
  Country: AT (occurrence: AT)
  Receive Date: 20180226
  Receipt Date: 20180226
  Transmission Date: 20180509
  Serious: Yes (Other)
  Sender: FDA-Public Use
  Company Number: AT-SUN PHARMACEUTICAL INDUSTRIES LTD-2018RR-163699

PATIENT
  Age: 49 Year
  Sex: Female
  Weight: 74 kg

DRUGS (37)
  1. SERTRALINE [Suspect]
     Active Substance: SERTRALINE HYDROCHLORIDE
     Dosage: 150 MG
     Route: 065
     Dates: start: 20160130, end: 20160217
  2. MEXALEN [Concomitant]
     Active Substance: ACETAMINOPHEN
     Dosage: 500 MG
     Route: 065
     Dates: start: 20160202, end: 20160202
  3. LYRICA [Concomitant]
     Active Substance: PREGABALIN
     Dosage: 250 MG
     Route: 065
     Dates: start: 20160127, end: 20160129
  4. LISINOPRIL DIHYDRATE [Concomitant]
     Active Substance: LISINOPRIL
     Dosage: 10 MG
     Route: 065
     Dates: start: 20160213
  5. SERTRALINE [Suspect]
     Active Substance: SERTRALINE HYDROCHLORIDE
     Indication: PRODUCT USED FOR UNKNOWN INDICATION
     Dosage: 50 MG
     Route: 065
     Dates: start: 20160122, end: 20160124
  6. SERTRALINE [Suspect]
     Active Substance: SERTRALINE HYDROCHLORIDE
     Dosage: 100 MG
     Route: 065
     Dates: start: 20160125, end: 20160129
  7. MIRTAZAPINE. [Suspect]
     Active Substance: MIRTAZAPINE
     Indication: PRODUCT USED FOR UNKNOWN INDICATION
     Dosage: 30 MG
     Route: 065
     Dates: start: 20160203, end: 20160207
  8. BRUFEN [Suspect]
     Active Substance: IBUPROFEN
     Dosage: 600 MG
     Route: 065
     Dates: start: 20160215, end: 20160216
  9. LYRICA [Concomitant]
     Active Substance: PREGABALIN
     Dosage: 300 MG
     Route: 065
     Dates: start: 20160130, end: 20160216
  10. BRUFEN [Suspect]
     Active Substance: IBUPROFEN
     Indication: PRODUCT USED FOR UNKNOWN INDICATION
     Dosage: 400 MG
     Route: 065
     Dates: start: 20160217
  11. MEXALEN [Concomitant]
     Active Substance: ACETAMINOPHEN
     Dosage: 1000 MG
     Route: 065
     Dates: start: 20160215
  12. LISINOPRIL DIHYDRATE [Concomitant]
     Active Substance: LISINOPRIL
     Indication: PRODUCT USED FOR UNKNOWN INDICATION
     Dosage: 20 MG
     Route: 065
     Dates: end: 20160212
  13. PANTOPRAZOLE SODIUM SESQUIHYDRATE [Concomitant]
     Active Substance: PANTOPRAZOLE SODIUM
     Indication: PRODUCT USED FOR UNKNOWN INDICATION
     Dosage: 20 MG
     Route: 065
     Dates: start: 20160120
  14. BRUFEN [Suspect]
     Active Substance: IBUPROFEN
     Indication: PRODUCT USED FOR UNKNOWN INDICATION
     Dosage: 1200 MG
     Route: 065
     Dates: start: 20160119
  15. BRUFEN [Suspect]
     Active Substance: IBUPROFEN
     Dosage: 800 MG
     Route: 065
     Dates: start: 20160121, end: 20160214
  16. HOVA DRAGEES [Concomitant]
     Indication: PRODUCT USED FOR UNKNOWN INDICATION
     Dosage: 2 DF, AS NECESSARY
     Route: 065
     Dates: start: 20160129, end: 20160129
  17. LYRICA [Concomitant]
     Active Substance: PREGABALIN
     Indication: PRODUCT USED FOR UNKNOWN INDICATION
     Dosage: 100 MG
     Route: 065
     Dates: end: 20160121
  18. TRAMAL RETARD [Concomitant]
     Active Substance: TRAMADOL
     Indication: PRODUCT USED FOR UNKNOWN INDICATION
     Dosage: 100 MG
     Route: 065
     Dates: end: 20160118
  19. TRAMAL RETARD [Concomitant]
     Active Substance: TRAMADOL
     Dosage: 50 MG
     Route: 065
     Dates: start: 20160119, end: 20160124
  20. MEXALEN [Concomitant]
     Active Substance: ACETAMINOPHEN
     Dosage: 1000 MG
     Route: 065
     Dates: start: 20160208, end: 20160212
  21. SERTRALINE [Suspect]
     Active Substance: SERTRALINE HYDROCHLORIDE
     Indication: PRODUCT USED FOR UNKNOWN INDICATION
     Dosage: 200 MG
     Route: 065
     Dates: start: 20160218
  22. HOVA DRAGEES [Concomitant]
     Dosage: 2 DF, AS NECESSARY
     Route: 065
     Dates: start: 20160209, end: 20160212
  23. HOVA DRAGEES [Concomitant]
     Dosage: 2 DF, AS NECESSARY
     Route: 065
     Dates: start: 20160214
  24. LYRICA [Concomitant]
     Active Substance: PREGABALIN
     Dosage: 150 MG
     Route: 065
     Dates: start: 20160122, end: 20160124
  25. MIRTAZAPINE. [Suspect]
     Active Substance: MIRTAZAPINE
     Indication: PRODUCT USED FOR UNKNOWN INDICATION
     Dosage: 60 MG
     Route: 065
     Dates: start: 20160125, end: 20160202
  26. ABILIFY [Suspect]
     Active Substance: ARIPIPRAZOLE
     Indication: PRODUCT USED FOR UNKNOWN INDICATION
     Dosage: 5 MG
     Route: 065
     Dates: start: 20160122, end: 20160126
  27. LYRICA [Concomitant]
     Active Substance: PREGABALIN
     Dosage: 400 MG
     Route: 065
     Dates: start: 20160218
  28. MEXALEN [Concomitant]
     Active Substance: ACETAMINOPHEN
     Indication: PRODUCT USED FOR UNKNOWN INDICATION
     Dosage: 500 MG
     Route: 065
     Dates: start: 20160129, end: 20160129
  29. MEXALEN [Concomitant]
     Active Substance: ACETAMINOPHEN
     Dosage: 1500 MG
     Route: 065
     Dates: start: 20160213, end: 20160214
  30. OLEOVIT D3 [Concomitant]
     Active Substance: CHOLECALCIFEROL
     Indication: PRODUCT USED FOR UNKNOWN INDICATION
     Dosage: 28 GTT, 1/WEEK
     Route: 065
  31. MIRTAZAPINE. [Suspect]
     Active Substance: MIRTAZAPINE
     Indication: PRODUCT USED FOR UNKNOWN INDICATION
     Dosage: 30 MG
     Route: 065
     Dates: start: 201501
  32. MIRTAZAPINE. [Suspect]
     Active Substance: MIRTAZAPINE
     Dosage: 45 MG
     Route: 065
     Dates: end: 20160124
  33. BRUFEN [Suspect]
     Active Substance: IBUPROFEN
     Dosage: 1000 MG
     Route: 065
     Dates: start: 20160120, end: 20160120
  34. ABILIFY [Suspect]
     Active Substance: ARIPIPRAZOLE
     Indication: PRODUCT USED FOR UNKNOWN INDICATION
     Dosage: 10 MG
     Route: 065
     Dates: start: 20160127
  35. LYRICA [Concomitant]
     Active Substance: PREGABALIN
     Dosage: 200 MG
     Route: 065
     Dates: start: 20160125, end: 20160126
  36. LYRICA [Concomitant]
     Active Substance: PREGABALIN
     Dosage: 350 MG
     Route: 065
     Dates: start: 20160217, end: 20160217
  37. MAGNOSOLV [Concomitant]
     Indication: PRODUCT USED FOR UNKNOWN INDICATION
     Dosage: 1 DF
     Route: 065
     Dates: start: 20160127

REACTIONS (2)
  - Hypertension [Recovered/Resolved]
  - Depressive symptom [Unknown]

NARRATIVE: CASE EVENT DATE: 20160202
